FAERS Safety Report 8416028-0 (Version None)
Quarter: 2012Q2

REPORT INFORMATION
  Report Type: 
  Country: None (occurrence: None)
  Receive Date: 20120606
  Receipt Date: 20120525
  Transmission Date: 20120825
  Serious: Yes (Death)
  Sender: FDA-Public Use
  Company Number: JP-ROCHE-1043829

PATIENT
  Sex: Female

DRUGS (7)
  1. MIRCERA [Suspect]
     Indication: NEPHROGENIC ANAEMIA
     Route: 042
     Dates: start: 20111027, end: 20120105
  2. GLIMICRON [Concomitant]
     Indication: DIABETES MELLITUS
     Route: 048
  3. PLETAL [Concomitant]
     Indication: CEREBRAL INFARCTION
     Dosage: PETAAL OD
     Route: 048
  4. EPALRESTAT [Concomitant]
     Indication: DIABETIC AUTONOMIC NEUROPATHY
     Route: 048
  5. FAMOTIDINE [Concomitant]
     Dosage: FAMOTIDINE OD
     Route: 048
  6. PERSANTINE [Concomitant]
     Indication: PROTEINURIA
     Route: 048
  7. AMLODIPINE [Concomitant]
     Indication: HYPERTENSION
     Route: 048

REACTIONS (1)
  - MYOCARDIAL ISCHAEMIA [None]
